FAERS Safety Report 7267524-3 (Version None)
Quarter: 2011Q1

REPORT INFORMATION
  Report Type: 
  Country: None (occurrence: None)
  Receive Date: 20110121
  Receipt Date: 20101216
  Transmission Date: 20110831
  Serious: No
  Sender: FDA-Public Use
  Company Number: USA/USA/10/0016951

PATIENT
  Age: 71 Year
  Sex: Female
  Weight: 89.8122 kg

DRUGS (2)
  1. TOPROL-XL [Concomitant]
  2. ANASTROZOLE [Suspect]
     Indication: BREAST CANCER
     Dosage: 1 MG, 1 IN 1 D, ORAL
     Route: 048
     Dates: start: 20100801

REACTIONS (3)
  - PAIN IN EXTREMITY [None]
  - LOW DENSITY LIPOPROTEIN INCREASED [None]
  - PRODUCT SUBSTITUTION ISSUE [None]
